FAERS Safety Report 7054505-8 (Version None)
Quarter: 2010Q4

REPORT INFORMATION
  Report Type: 
  Country: None (occurrence: None)
  Receive Date: 20101020
  Receipt Date: 20100708
  Transmission Date: 20110411
  Serious: No
  Sender: FDA-Public Use
  Company Number: US-ALLERGAN-1004036US

PATIENT
  Age: 71 Year
  Sex: Female

DRUGS (6)
  1. LATISSE [Suspect]
     Indication: GROWTH OF EYELASHES
     Dosage: 1 GTT, QPM
     Dates: start: 20100201, end: 20100322
  2. SYNTHROID [Concomitant]
  3. METROPOL [Concomitant]
  4. LISINOPRIL [Concomitant]
  5. HYDROCHLOROTHIAZIDE [Concomitant]
  6. MULTI-VITAMINS [Concomitant]

REACTIONS (9)
  - DRUG INEFFECTIVE [None]
  - DRY EYE [None]
  - ERYTHEMA OF EYELID [None]
  - EYELID OEDEMA [None]
  - GINGIVAL HYPERPIGMENTATION [None]
  - HAIR GROWTH ABNORMAL [None]
  - SKIN BURNING SENSATION [None]
  - SKIN HYPERPIGMENTATION [None]
  - TONGUE PIGMENTATION [None]
